FAERS Safety Report 6466745-7 (Version None)
Quarter: 2009Q4

REPORT INFORMATION
  Report Type: 
  Country: None (occurrence: None)
  Receive Date: 20091202
  Receipt Date: 20091117
  Transmission Date: 20100525
  Serious: Yes (Hospitalization)
  Sender: FDA-Public Use
  Company Number: DE-GENENTECH-294907

PATIENT
  Sex: Female

DRUGS (4)
  1. BEVACIZUMAB [Suspect]
     Indication: RECTAL CANCER
     Dosage: 435 MG, UNK
     Route: 042
     Dates: start: 20090917, end: 20091014
  2. CALCIUMFOLINAT [Concomitant]
     Indication: RECTAL CANCER
     Dosage: UNK
     Dates: start: 20090917, end: 20091027
  3. FLUOROURACIL [Concomitant]
     Indication: RECTAL CANCER
     Dosage: UNK
     Dates: start: 20090917, end: 20091027
  4. IRINOTECAN HCL [Concomitant]
     Indication: RECTAL CANCER
     Dosage: UNK
     Dates: start: 20090917, end: 20091027

REACTIONS (1)
  - ILL-DEFINED DISORDER [None]
